FAERS Safety Report 5557095-1 (Version None)
Quarter: 2007Q4

REPORT INFORMATION
  Report Type: 
  Country: None (occurrence: None)
  Receive Date: 20071211
  Receipt Date: 20071211
  Transmission Date: 20080405
  Serious: Yes (Other)
  Sender: FDA-Public Use
  Company Number: None

PATIENT
  Age: 51 Year
  Sex: Female
  Weight: 56.6996 kg

DRUGS (1)
  1. CHANTIX [Suspect]
     Indication: SMOKING CESSATION THERAPY
     Dosage: 1/2 MG FOR FIRST FEW DAYS 2X DAY PO : 1 MG 2X DAY PO
     Route: 048
     Dates: start: 20070930, end: 20071027

REACTIONS (7)
  - ABNORMAL BEHAVIOUR [None]
  - ANGER [None]
  - ARTHRALGIA [None]
  - FEELING ABNORMAL [None]
  - GOITRE [None]
  - MYALGIA [None]
  - PAIN IN EXTREMITY [None]
